FAERS Safety Report 4990142-4 (Version None)
Quarter: 2006Q2

REPORT INFORMATION
  Report Type: 
  Country: None (occurrence: None)
  Receive Date: 20060503
  Receipt Date: 20050829
  Transmission Date: 20061013
  Serious: Yes (Hospitalization, Disabling, Other)
  Sender: FDA-Public Use
  Company Number: US-MERCK-0508USA04620

PATIENT
  Age: 60 Year
  Sex: Female
  Weight: 85 kg

DRUGS (2)
  1. VIOXX [Suspect]
     Indication: ARTHRITIS
     Route: 048
     Dates: end: 20031101
  2. VIOXX [Suspect]
     Indication: OSTEOARTHRITIS
     Route: 048
     Dates: end: 20031101

REACTIONS (26)
  - ABDOMINAL PAIN [None]
  - ACUTE MYOCARDIAL INFARCTION [None]
  - ANGINA UNSTABLE [None]
  - CHEST PAIN [None]
  - COLON ADENOMA [None]
  - CONSTIPATION [None]
  - CORONARY ARTERY DISEASE [None]
  - CORONARY ARTERY OCCLUSION [None]
  - CORONARY ARTERY STENOSIS [None]
  - DIVERTICULUM [None]
  - DYSLIPIDAEMIA [None]
  - GASTRITIS [None]
  - GOITRE [None]
  - HAEMANGIOMA OF LIVER [None]
  - HERPES ZOSTER [None]
  - HIATUS HERNIA [None]
  - ILEUS [None]
  - INJURY [None]
  - IRON DEFICIENCY ANAEMIA [None]
  - MYOCARDIAL INFARCTION [None]
  - NAUSEA [None]
  - PAIN [None]
  - PAIN IN EXTREMITY [None]
  - RHEUMATOID ARTHRITIS [None]
  - ROAD TRAFFIC ACCIDENT [None]
  - SYSTEMIC LUPUS ERYTHEMATOSUS [None]
